FAERS Safety Report 9552613 (Version 2)
Quarter: 2013Q4

REPORT INFORMATION
  Report Type: Spontaneous
  Country: US (occurrence: US)
  Receive Date: 20130925
  Receipt Date: 20131104
  Transmission Date: 20140711
  Serious: No
  Sender: FDA-Public Use
  Company Number: US-PFIZER INC-2013275442

PATIENT
  Age: 54 Year
  Sex: Female

DRUGS (20)
  1. LYRICA [Suspect]
     Indication: SYSTEMIC LUPUS ERYTHEMATOSUS
     Dosage: 150 MG, 3X/DAY
     Route: 048
  2. GLUCOPHAGE [Concomitant]
     Indication: TYPE 2 DIABETES MELLITUS
     Dosage: 1000 MG, 2X/DAY
  3. LISINOPRIL [Concomitant]
     Indication: ESSENTIAL HYPERTENSION
     Dosage: 20 MG, DAILY
  4. HYDROCHLOROTHIAZIDE [Concomitant]
     Indication: ESSENTIAL HYPERTENSION
     Dosage: 25 MG, 1X/DAY
  5. PRAVACHOL [Concomitant]
     Indication: HYPERLIPIDAEMIA
     Dosage: 20 MG, 1X/DAY (AT BEDTIME)
  6. PREVACID [Concomitant]
     Indication: GASTROOESOPHAGEAL REFLUX DISEASE
     Dosage: 30 MG, DAILY
  7. REGLAN [Concomitant]
     Indication: GASTROOESOPHAGEAL REFLUX DISEASE
     Dosage: 10 MG, 3X/DAY
  8. BENTYL [Concomitant]
     Indication: GASTROOESOPHAGEAL REFLUX DISEASE
     Dosage: 10 MG, 2X/DAY
  9. CYMBALTA [Concomitant]
     Indication: DEPRESSION
     Dosage: 60 MG, DAILY
  10. MIRAPEX [Concomitant]
     Indication: RESTLESS LEGS SYNDROME
     Dosage: 0.125 MG, 2X/DAY
  11. TRICOR [Concomitant]
     Indication: HYPERLIPIDAEMIA
     Dosage: 48 MG, DAILY
  12. LUNESTA [Concomitant]
     Indication: INSOMNIA
     Dosage: 3 MG, 1X/DAY  (1 TABLET AT BEDTIME)
  13. NOVOLOG FLEXPEN [Concomitant]
     Indication: TYPE 2 DIABETES MELLITUS
     Dosage: 65 IU, UNK (BEFORE EVERY MEAL)
  14. FENTANYL [Concomitant]
     Dosage: 50MCG/HR, 1 PATCH 72HR EVERY 72 HOURS, 45 PATCH 72HR
  15. HUMULIN N PEN [Concomitant]
     Indication: TYPE 2 DIABETES MELLITUS
     Dosage: 100UNIT/ML, 100 UNITS IN THE AM AND SUSPENSION 100 UNITS IN THE PM
  16. ECONAZOLE NITRATE [Concomitant]
     Indication: PSORIASIS
     Dosage: UNK, 1% 1 CREAM TWO TIMES DAILY
  17. LOTRISONE [Concomitant]
     Indication: PSORIASIS
     Dosage: UNK, 1-0.05%  1 CREAM TWO TIMES DAILY, AS NEEDED
  18. PERCOCET [Concomitant]
     Indication: BACK PAIN
     Dosage: 10MG/ 325MG, 1 TABLET EVERY 6 HOURS AS NEEDED
  19. BACTROBAN [Concomitant]
     Dosage: UNK, 2X/DAY (2% OINTMENT EXTERNAL TWO TIMES DAILY)
  20. HYDROCODONE W/ACETAMINOPHEN [Concomitant]
     Indication: BACK PAIN
     Dosage: 10MG/325MG, AS NEEDED (1 TABLET EVERY 6 HOURS)

REACTIONS (3)
  - Off label use [Unknown]
  - Nasopharyngitis [Unknown]
  - Malaise [Unknown]
